FAERS Safety Report 8594350-5 (Version None)
Quarter: 2012Q3

REPORT INFORMATION
  Report Type: 
  Country: None (occurrence: None)
  Receive Date: 20120815
  Receipt Date: 20120806
  Transmission Date: 20120928
  Serious: No
  Sender: FDA-Public Use
  Company Number: US-BIOGENIDEC-2012BI029826

PATIENT
  Sex: Female

DRUGS (4)
  1. TYSABRI [Suspect]
     Indication: MULTIPLE SCLEROSIS
     Route: 042
     Dates: start: 20050110
  2. TYSABRI [Suspect]
     Route: 042
     Dates: start: 20070306, end: 20100928
  3. TYSABRI [Suspect]
     Route: 042
     Dates: start: 20060919, end: 20061215
  4. TYSABRI [Suspect]
     Route: 042
     Dates: start: 20111026

REACTIONS (1)
  - PAIN [None]
